FAERS Safety Report 7757999-5 (Version None)
Quarter: 2011Q3

REPORT INFORMATION
  Report Type: 
  Country: None (occurrence: None)
  Receive Date: 20110919
  Receipt Date: 20110913
  Transmission Date: 20111222
  Serious: No
  Sender: FDA-Public Use
  Company Number: US-BIOGENIDEC-2010BI036331

PATIENT
  Sex: Female

DRUGS (2)
  1. TYSABRI [Suspect]
     Route: 042
     Dates: start: 20101021, end: 20110629
  2. TYSABRI [Suspect]
     Indication: MULTIPLE SCLEROSIS
     Route: 042
     Dates: start: 20080402, end: 20100407

REACTIONS (7)
  - MOBILITY DECREASED [None]
  - HEMIPARESIS [None]
  - MOTOR DYSFUNCTION [None]
  - HEADACHE [None]
  - EYE DISORDER [None]
  - DRUG INEFFECTIVE [None]
  - BALANCE DISORDER [None]
